FAERS Safety Report 4647257-X (Version None)
Quarter: 2005Q2

REPORT INFORMATION
  Report Type: 
  Country: None (occurrence: None)
  Receive Date: 20050428
  Receipt Date: 20050421
  Transmission Date: 20051028
  Serious: Yes (Hospitalization)
  Sender: FDA-Public Use
  Company Number: 200511246JP

PATIENT
  Age: 37 Year
  Sex: Female

DRUGS (1)
  1. LASIX [Suspect]

REACTIONS (10)
  - ARTHROPATHY [None]
  - BONE LESION [None]
  - ELECTROLYTE IMBALANCE [None]
  - GOUTY TOPHUS [None]
  - HYPERURICAEMIA [None]
  - HYPOCHLORAEMIA [None]
  - HYPOKALAEMIA [None]
  - METABOLIC ALKALOSIS [None]
  - PSEUDO-BARTTER SYNDROME [None]
  - RENAL DISORDER [None]
